FAERS Safety Report 8351242-4 (Version None)
Quarter: 2012Q2

REPORT INFORMATION
  Report Type: 
  Country: None (occurrence: None)
  Receive Date: 20120510
  Receipt Date: 20120501
  Transmission Date: 20120825
  Serious: Yes (Death, Hospitalization)
  Sender: FDA-Public Use
  Company Number: TR-FRI-1000030396

PATIENT
  Age: 44 Year
  Sex: Male

DRUGS (2)
  1. AURORIX [Suspect]
  2. ESCITALOPRAM [Suspect]
     Route: 048

REACTIONS (1)
  - SYNCOPE [None]
